FAERS Safety Report 17563764 (Version 1)
Quarter: 2020Q1

REPORT INFORMATION
  Report Type: Spontaneous
  Country: US (occurrence: US)
  Receive Date: 20200320
  Receipt Date: 20200320
  Transmission Date: 20200409
  Serious: No
  Sender: FDA-Public Use
  Company Number: US-TEVA-2020-US-1203448

PATIENT
  Sex: Female

DRUGS (1)
  1. NEOMYCIN. [Suspect]
     Active Substance: NEOMYCIN
     Route: 065

REACTIONS (4)
  - Pain in jaw [Unknown]
  - Insomnia [Unknown]
  - Feeding disorder [Unknown]
  - Ear infection [Unknown]
